FAERS Safety Report 15743275 (Version 4)
Quarter: 2019Q2

REPORT INFORMATION
  Report Type: Report from Study
  Country: US (occurrence: US)
  Receive Date: 20181220
  Receipt Date: 20190508
  Transmission Date: 20190711
  Serious: No
  Sender: FDA-Public Use
  Company Number: PHEH2018US052581

PATIENT
  Sex: Male

DRUGS (1)
  1. ENTRESTO [Suspect]
     Active Substance: SACUBITRIL\VALSARTAN
     Indication: PRODUCT USED FOR UNKNOWN INDICATION
     Dosage: UNK
     Route: 065

REACTIONS (9)
  - Tooth loss [Unknown]
  - Malaise [Unknown]
  - Gout [Unknown]
  - Stress [Unknown]
  - Pain in extremity [Unknown]
  - Back pain [Unknown]
  - Pollakiuria [Unknown]
  - Depressed mood [Unknown]
  - Fatigue [Unknown]
